FAERS Safety Report 9158096 (Version 2)
Quarter: 2013Q2

REPORT INFORMATION
  Report Type: Spontaneous
  Country: US (occurrence: US)
  Receive Date: 20130312
  Receipt Date: 20130430
  Transmission Date: 20140414
  Serious: No
  Sender: FDA-Public Use
  Company Number: US-VERTEX PHARMACEUTICALS INC.-2013-003307

PATIENT
  Age: 28 Year
  Sex: Female
  Weight: 127 kg

DRUGS (3)
  1. INCIVEK [Suspect]
     Indication: HEPATITIS C
     Dosage: 750 MG, TID
     Route: 048
     Dates: start: 20130220
  2. RIBAVIRIN [Suspect]
     Indication: HEPATITIS C
     Dosage: 4 PILLS IN AM, 3 PILLS PM
     Route: 048
     Dates: start: 20130220
  3. PEGASYS [Suspect]
     Indication: HEPATITIS C
     Dosage: 180 ?G, QW
     Route: 058
     Dates: start: 20130221

REACTIONS (5)
  - Inappropriate schedule of drug administration [Recovered/Resolved]
  - Haemorrhoids [Not Recovered/Not Resolved]
  - Anal fissure [Not Recovered/Not Resolved]
  - Anorectal discomfort [Not Recovered/Not Resolved]
  - Anal pruritus [Not Recovered/Not Resolved]
